FAERS Safety Report 13589890 (Version 1)
Quarter: 2017Q2

REPORT INFORMATION
  Report Type: Other
  Country: IT (occurrence: IT)
  Receive Date: 20170529
  Receipt Date: 20170529
  Transmission Date: 20170830
  Serious: Yes (Hospitalization, Other)
  Sender: FDA-Public Use
  Company Number: IT-HETERO LABS LTD-2021318

PATIENT
  Age: 65 Year
  Sex: Male

DRUGS (2)
  1. PANTOPRAZOLE [Suspect]
     Active Substance: PANTOPRAZOLE
     Indication: GASTRITIS
     Route: 065
  2. MAGNESIUM PIDOLATE [Concomitant]
     Active Substance: MAGNESIUM PIDOLATE
     Route: 065

REACTIONS (6)
  - Hypokalaemia [Recovered/Resolved]
  - Vasculitis cerebral [Recovered/Resolved]
  - Cerebellar ischaemia [Recovered/Resolved]
  - Hypomagnesaemia [Recovered/Resolved]
  - Hypoparathyroidism [Recovered/Resolved]
  - Hypocalcaemia [Recovered/Resolved]
